FAERS Safety Report 21311736 (Version 1)
Quarter: 2022Q3

REPORT INFORMATION
  Report Type: Spontaneous
  Country: US (occurrence: None)
  Receive Date: 20220909
  Receipt Date: 20220909
  Transmission Date: 20221027
  Serious: No
  Sender: FDA-Public Use
  Company Number: US-ARIS GLOBAL-202203-0380

PATIENT
  Sex: Female

DRUGS (13)
  1. OXERVATE [Suspect]
     Active Substance: CENEGERMIN-BKBJ
     Indication: Neurotrophic keratopathy
     Route: 047
     Dates: start: 20220120
  2. ROSUVASTATIN CALCIUM [Concomitant]
     Active Substance: ROSUVASTATIN CALCIUM
  3. VASCEPA [Concomitant]
     Active Substance: ICOSAPENT ETHYL
  4. ELIQUIS [Concomitant]
     Active Substance: APIXABAN
  5. FEBUXOSTAT [Concomitant]
     Active Substance: FEBUXOSTAT
  6. ATORVASTATIN CALCIUM [Concomitant]
     Active Substance: ATORVASTATIN CALCIUM
  7. CARVEDILOL [Concomitant]
     Active Substance: CARVEDILOL
  8. NOVOLOG [Concomitant]
     Active Substance: INSULIN ASPART
  9. TRESIBA [Concomitant]
     Active Substance: INSULIN DEGLUDEC
  10. VICTOZA [Concomitant]
     Active Substance: LIRAGLUTIDE
  11. METOLAZONE [Concomitant]
     Active Substance: METOLAZONE
  12. POTASSIUM CHLORIDE [Concomitant]
     Active Substance: POTASSIUM CHLORIDE
  13. BUMETANIDE [Concomitant]
     Active Substance: BUMETANIDE

REACTIONS (2)
  - Eye pain [Unknown]
  - Vision blurred [Unknown]
